FAERS Safety Report 24395015 (Version 1)
Quarter: 2024Q4

REPORT INFORMATION
  Report Type: Other
  Country: GB (occurrence: GB)
  Receive Date: 20241004
  Receipt Date: 20241004
  Transmission Date: 20250115
  Serious: Yes (Other)
  Sender: FDC LIMITED
  Company Number: GB-MHRA-TPP34047768C7749218YC1727102559661

PATIENT
  Age: 72 Year
  Sex: Male
  Weight: 72 kg

DRUGS (6)
  1. DORZOLAMIDE [Suspect]
     Active Substance: DORZOLAMIDE
     Indication: Ill-defined disorder
     Dosage: 20MG/ML?TO BOTH EYES
     Dates: start: 20240604
  2. AMLODIPINE [Concomitant]
     Active Substance: AMLODIPINE BESYLATE
     Indication: Hypertension
     Route: 048
     Dates: start: 20240130
  3. HYABAK [Concomitant]
     Indication: Ill-defined disorder
     Dosage: TO BOTH EYES
     Dates: start: 20240130
  4. LISINOPRIL [Concomitant]
     Active Substance: LISINOPRIL
     Indication: Ill-defined disorder
     Dates: start: 20240130
  5. LATANOPROST [Concomitant]
     Active Substance: LATANOPROST
     Indication: Ill-defined disorder
     Dosage: AT NIGHT TO RIGHT EYE ONLY
     Dates: start: 20240130
  6. TIMOLOL MALEATE [Concomitant]
     Active Substance: TIMOLOL MALEATE
     Indication: Ill-defined disorder
     Dosage: IN THE MORNING, TO THE RIGHT EYE
     Dates: start: 20240920

REACTIONS (3)
  - Diarrhoea [Recovered/Resolved]
  - Eye pain [Recovered/Resolved]
  - Nausea [Recovered/Resolved]

NARRATIVE: CASE EVENT DATE: 20240923
